FAERS Safety Report 8239729-6 (Version None)
Quarter: 2012Q1

REPORT INFORMATION
  Report Type: 
  Country: None (occurrence: None)
  Receive Date: 20120328
  Receipt Date: 20120319
  Transmission Date: 20120608
  Serious: Yes (Other)
  Sender: FDA-Public Use
  Company Number: IE-JNJFOC-20120105198

PATIENT
  Sex: Male

DRUGS (5)
  1. ACETAMINOPHEN W/ CODEINE [Concomitant]
     Indication: MIGRAINE
     Route: 065
     Dates: start: 20111101
  2. DICLOFENAC SODIUM [Concomitant]
     Indication: MIGRAINE
     Route: 065
     Dates: start: 20120111
  3. XEPLION [Suspect]
     Indication: SCHIZOPHRENIA
     Route: 030
  4. XEPLION [Suspect]
     Route: 030
     Dates: start: 20111001
  5. MEFENAMIC ACID [Concomitant]
     Indication: MIGRAINE
     Route: 065
     Dates: start: 20111101

REACTIONS (1)
  - CHEST PAIN [None]
